FAERS Safety Report 22861955 (Version 7)
Quarter: 2024Q4

REPORT INFORMATION
  Report Type: Spontaneous
  Country: US (occurrence: US)
  Receive Date: 20230824
  Receipt Date: 20241014
  Transmission Date: 20250115
  Serious: Yes (Hospitalization, Other)
  Sender: PFIZER
  Company Number: US-PFIZER INC-202300282667

PATIENT
  Age: 82 Year
  Sex: Female
  Weight: 100.68 kg

DRUGS (5)
  1. ZOLEDRONIC ACID [Suspect]
     Active Substance: ZOLEDRONIC ACID
     Dosage: UNK
  2. IBRANCE [Suspect]
     Active Substance: PALBOCICLIB
     Indication: Metastases to breast
     Dosage: 125 MG, DAILY
     Route: 048
  3. IBRANCE [Suspect]
     Active Substance: PALBOCICLIB
     Indication: Breast cancer female
     Dosage: 125 MILLIGRAM, QD (ONCE A DAY) (FOR 21DAYS, 7 DAYS OFF), ORAL USE
     Route: 048
  4. XGEVA [Suspect]
     Active Substance: DENOSUMAB
     Indication: Breast cancer female
     Dosage: UNK
     Dates: start: 20200310, end: 20210812
  5. MORPHINE SULFATE [Concomitant]
     Active Substance: MORPHINE SULFATE
     Dosage: UNK

REACTIONS (6)
  - Osteomyelitis [Recovering/Resolving]
  - Full blood count abnormal [Unknown]
  - Syncope [Unknown]
  - Pain in jaw [Unknown]
  - Osteonecrosis of jaw [Recovering/Resolving]
  - Drug hypersensitivity [Unknown]

NARRATIVE: CASE EVENT DATE: 20220615
